FAERS Safety Report 6904100-3 (Version None)
Quarter: 2010Q3

REPORT INFORMATION
  Report Type: 
  Country: None (occurrence: None)
  Receive Date: 20100804
  Receipt Date: 20090318
  Transmission Date: 20110219
  Serious: No
  Sender: FDA-Public Use
  Company Number: US-PFIZER INC-2009156595

PATIENT
  Sex: Female
  Weight: 95.238 kg

DRUGS (8)
  1. LYRICA [Suspect]
     Indication: MIGRAINE
     Dosage: 75 MG, 2X/DAY
  2. LAMICTAL [Concomitant]
     Dosage: UNK
  3. NORTRIPTYLINE [Concomitant]
     Dosage: UNK
  4. NAPROSYN [Concomitant]
     Dosage: UNK
  5. TRAZODONE [Concomitant]
     Dosage: UNK
  6. FLEXERIL [Concomitant]
     Dosage: UNK
  7. IBUPROFEN [Concomitant]
     Dosage: UNK
  8. LEXAPRO [Concomitant]
     Dosage: UNK

REACTIONS (1)
  - LARYNGITIS [None]
